FAERS Safety Report 8952777 (Version 1)
Quarter: 2012Q4

REPORT INFORMATION
  Report Type: 
  Country: US (occurrence: US)
  Receive Date: 20121204
  Receipt Date: 20121204
  Transmission Date: 20130627
  Serious: Yes (Life-Threatening, Hospitalization, Other)
  Sender: FDA-Public Use
  Company Number: US-ROCHE-1161484

PATIENT
  Sex: Male
  Weight: 77.18 kg

DRUGS (5)
  1. XOLAIR [Suspect]
     Indication: ASTHMA
     Route: 058
     Dates: start: 20110303, end: 20121106
  2. THEOPHYLLINE [Concomitant]
  3. DULERA [Concomitant]
  4. XOPENEX [Concomitant]
  5. FLONASE [Concomitant]

REACTIONS (1)
  - Autoimmune pancreatitis [Not Recovered/Not Resolved]
